FAERS Safety Report 8950933 (Version 1)
Quarter: 2012Q4

REPORT INFORMATION
  Report Type: 
  Country: US (occurrence: US)
  Receive Date: 20121207
  Receipt Date: 20121207
  Transmission Date: 20130627
  Serious: Yes (Hospitalization, Other)
  Sender: FDA-Public Use
  Company Number: US-PFIZER INC-2012271219

PATIENT
  Age: 51 Year
  Sex: Female
  Weight: 117 kg

DRUGS (10)
  1. CHANTIX [Suspect]
     Indication: SMOKING CESSATION THERAPY
     Dosage: 0.5 mg, daily
     Dates: end: 201207
  2. REGLAN [Suspect]
     Indication: DIGESTION IMPAIRED
     Dosage: 10 mg,(three to four times a day)
  3. REGLAN [Suspect]
     Dosage: UNK
  4. TRAMADOL HYDROCHLORIDE [Concomitant]
     Indication: PAIN
     Dosage: 100 mg, as needed
  5. BACLOFEN [Concomitant]
     Indication: PAIN
     Dosage: 20 mg, as needed
  6. TESSALON PERLE [Concomitant]
     Indication: LUNG DISORDER
     Dosage: 100 mg, 3x/day
  7. DILTIAZEM HYDROCHLORIDE [Concomitant]
     Indication: BLOOD PRESSURE ABNORMAL
     Dosage: 30 mg, 4x/day
  8. ALBUTEROL SULFATE [Concomitant]
     Dosage: 2 puffs as needed
  9. WARFARIN SODIUM [Concomitant]
     Indication: CLOT BLOOD
     Dosage: 5 mg,daily
  10. TORSEMIDE [Concomitant]
     Indication: BLOOD PRESSURE ABNORMAL
     Dosage: 20 mg,daily

REACTIONS (5)
  - Hypersensitivity [Unknown]
  - Chest pain [Unknown]
  - Chronic obstructive pulmonary disease [Unknown]
  - Tremor [Unknown]
  - Muscle rigidity [Unknown]
